APPROVED DRUG PRODUCT: ESTRADIOL
Active Ingredient: ESTRADIOL
Strength: 0.0375MG/24HR
Dosage Form/Route: FILM, EXTENDED RELEASE;TRANSDERMAL
Application: A202985 | Product #002 | TE Code: AB2
Applicant: ZYDUS PHARMACEUTICALS USA INC
Approved: Mar 29, 2023 | RLD: No | RS: No | Type: RX